FAERS Safety Report 25458915 (Version 1)
Quarter: 2025Q2

REPORT INFORMATION
  Report Type: Report from Study
  Country: EG (occurrence: EG)
  Receive Date: 20250620
  Receipt Date: 20250620
  Transmission Date: 20250717
  Serious: Yes (Hospitalization)
  Sender: NOVARTIS
  Company Number: EG-002147023-NVSC2025EG097052

PATIENT
  Sex: Female
  Weight: 89 kg

DRUGS (8)
  1. ENTRESTO [Suspect]
     Active Substance: SACUBITRIL\VALSARTAN
     Indication: Cardiac failure
     Dosage: 50 MG, BID (HALF TABLET TWICE DAILY (OFF LABEL DOSE))
     Route: 048
     Dates: start: 2023, end: 202409
  2. ENTRESTO [Suspect]
     Active Substance: SACUBITRIL\VALSARTAN
     Dosage: 50 MG, BID (ONE TABLET TWICE DAILY)
     Route: 048
     Dates: start: 202409, end: 202503
  3. ENTRESTO [Suspect]
     Active Substance: SACUBITRIL\VALSARTAN
     Dosage: 50 MG, BID (ONE TABLET TWICE DAILY)
     Route: 048
     Dates: start: 202503, end: 202503
  4. ENTRESTO [Suspect]
     Active Substance: SACUBITRIL\VALSARTAN
     Dosage: 50 MG, BID (I TABLET TWICE DAILY)
     Route: 048
     Dates: start: 202503
  5. INSULIN HUMAN [Concomitant]
     Active Substance: INSULIN HUMAN
     Indication: Diabetes mellitus
     Dosage: 20-30 IU ONCE DAILY
     Route: 058
     Dates: start: 2014
  6. DAPAGLIFLOZIN [Concomitant]
     Active Substance: DAPAGLIFLOZIN
     Indication: Diabetes mellitus
     Dosage: 10 MG, QD (1 TABLET DAILY)
     Route: 048
     Dates: start: 2014
  7. ATORVASTATIN CALCIUM [Concomitant]
     Active Substance: ATORVASTATIN CALCIUM
     Indication: Product used for unknown indication
     Dosage: 40 MG, QD (1 TABLET ONCE DAILY)
     Route: 048
  8. TORSEMIDE [Concomitant]
     Active Substance: TORSEMIDE
     Indication: Diuretic therapy
     Dosage: 100 MG, QD (1 TABLET ONCE DAILY)
     Route: 048

REACTIONS (4)
  - Ejection fraction decreased [Not Recovered/Not Resolved]
  - Dyspnoea [Not Recovered/Not Resolved]
  - Renal impairment [Not Recovered/Not Resolved]
  - Wrong technique in product usage process [Recovered/Resolved]

NARRATIVE: CASE EVENT DATE: 20230101
